FAERS Safety Report 7757679-6 (Version None)
Quarter: 2011Q3

REPORT INFORMATION
  Report Type: 
  Country: None (occurrence: None)
  Receive Date: 20110916
  Receipt Date: 20110916
  Transmission Date: 20111222
  Serious: Yes (Hospitalization)
  Sender: FDA-Public Use
  Company Number: ES-AMGEN-UK356658

PATIENT
  Age: 60 Year
  Sex: Female
  Weight: 78 kg

DRUGS (16)
  1. PREDNISONE [Concomitant]
     Indication: MUCOSAL INFLAMMATION
     Dosage: 5 MG, UNK
     Route: 048
     Dates: start: 20090603, end: 20090619
  2. FLUOROURACIL [Concomitant]
     Dosage: 3340.8 MG, UNK
     Route: 042
     Dates: start: 20090630
  3. OXALIPLATIN [Concomitant]
     Indication: COLORECTAL CANCER
     Dosage: 147.9 MG, UNK
     Route: 042
     Dates: start: 20090519
  4. IBUPROFEN [Concomitant]
     Indication: BACK PAIN
     Dosage: 600 MG, UNK
     Route: 048
     Dates: start: 20090630
  5. DOXICICLINA [Concomitant]
     Indication: DERMATITIS
     Dosage: 100 MG, UNK
     Route: 048
     Dates: start: 20090519
  6. LIDOCAINE [Concomitant]
     Indication: MUCOSAL INFLAMMATION
     Dosage: UNK
     Route: 048
     Dates: start: 20090605, end: 20110627
  7. PANTOPRAZOLE [Concomitant]
     Indication: GASTRITIS
     Dosage: 40 MG, UNK
     Route: 048
     Dates: start: 20090407
  8. NYSTATIN [Concomitant]
     Indication: MUCOSAL INFLAMMATION
     Dosage: 1000 MG, UNK
     Route: 048
     Dates: start: 20090526, end: 20090711
  9. HIDROCORTISONA [Concomitant]
     Indication: DERMATITIS
     Dosage: UNK
     Route: 061
     Dates: start: 20090519
  10. DURAGESIC-100 [Concomitant]
     Indication: PAIN
     Dosage: 12.5 MUG, UNK
     Route: 062
     Dates: start: 20090415
  11. FERROUS SULFATE TAB [Concomitant]
     Indication: ANAEMIA
     Dosage: UNK MG, UNK
     Route: 048
     Dates: start: 20090602
  12. LEUCOVORIN CALCIUM [Concomitant]
     Indication: COLORECTAL CANCER
     Dosage: 348 MG, UNK
     Route: 042
     Dates: start: 20090519
  13. LEVOTHYROXINE SODIUM [Concomitant]
     Indication: HYPOTHYROIDISM
     Dosage: 125 MUG, UNK
     Route: 048
     Dates: start: 20090304
  14. PANITUMUMAB [Suspect]
     Indication: COLORECTAL CANCER
     Dosage: 480 MG, Q2WK
     Route: 042
     Dates: start: 20090519
  15. FLUOROURACIL [Concomitant]
     Indication: COLORECTAL CANCER
     Dosage: 556.8 MG, UNK
     Route: 042
     Dates: start: 20090519
  16. CARVEDILOL [Concomitant]
     Indication: HYPERTENSION
     Dosage: 6.25 MG, UNK
     Route: 048

REACTIONS (13)
  - OESOPHAGITIS [None]
  - BLOOD UREA INCREASED [None]
  - BLOOD LACTATE DEHYDROGENASE INCREASED [None]
  - BLOOD CHLORIDE DECREASED [None]
  - HAEMOGLOBIN DECREASED [None]
  - HAEMATOCRIT DECREASED [None]
  - BLOOD SODIUM DECREASED [None]
  - BLOOD URIC ACID DECREASED [None]
  - BLOOD GLUCOSE INCREASED [None]
  - MONOCYTE PERCENTAGE INCREASED [None]
  - TRANSFERRIN DECREASED [None]
  - BLOOD POTASSIUM DECREASED [None]
  - BLOOD IRON DECREASED [None]
